FAERS Safety Report 9717108 (Version 1)
Quarter: 2013Q4

REPORT INFORMATION
  Report Type: Spontaneous
  Country: US (occurrence: None)
  Receive Date: 20131125
  Receipt Date: 20131125
  Transmission Date: 20140711
  Serious: Yes (Hospitalization)
  Sender: FDA-Public Use
  Company Number: EUS-2013-00734

PATIENT
  Age: 17 Year
  Sex: Male

DRUGS (9)
  1. ERWINASE (ASPARAGINASE) [Suspect]
     Indication: ACUTE LEUKAEMIA
     Dosage: (2500 IU/M2 DAYS DAYS 2, 5, 15, 22}
     Dates: start: 20130821, end: 20130910
  2. VELCADE (BORTEZOMIB) [Suspect]
     Dosage: (1.3 MG/M2. DAYS 1, 4, 8, AND 11, INTRAVENOUS BOLUS
     Route: 040
     Dates: start: 20130820
  3. CYCLOPHOSPHAMIDE (CYCLOPHOSPHAMIDE) [Suspect]
     Dosage: (8-15 MG), INTRATHECAL
     Dates: start: 20130930, end: 20131005
  4. ETOPOSIDE [Suspect]
     Dosage: (100 MG/M2, DAYS 1-5 AND 22), INTRAVENOUS (NOT OTHERWISE SPECIFIED)
     Route: 042
  5. METHOTREXATE (METHOTREXATE) [Suspect]
     Dates: start: 20130820
  6. CYTARABINE (CYTARABINE) [Suspect]
     Dosage: (30-70MG DAY 1), INTRATHECAL
     Route: 037
     Dates: start: 20130820, end: 20130820
  7. DOXORUBICIN [Suspect]
     Dosage: 60 MG/M2 (60 MG/M2,DAY
     Dates: start: 20130820, end: 20130820
  8. PREDNISONE (PREDNISONE) [Suspect]
     Indication: B PRECURSOR TYPE ACUTE LEUKAEMIA
     Dates: start: 20130820, end: 20130917
  9. VINCRISTINE [Suspect]
     Dosage: (DAYS 1. 5, 15 AND 22 ), INTRAVENOUS BOLUS
     Route: 041
     Dates: start: 20130820, end: 20130910

REACTIONS (5)
  - Hypotension [None]
  - Escherichia infection [None]
  - Sepsis [None]
  - Skin ulcer [None]
  - Skin exfoliation [None]
